FAERS Safety Report 7887732 (Version 2)
Quarter: 2012Q4

REPORT INFORMATION
  Report Type: Report from Study
  Country: US (occurrence: US)
  Receive Date: 20110406
  Receipt Date: 20120906
  Transmission Date: 20130627
  Serious: Yes (Hospitalization)
  Sender: FDA-Public Use
  Company Number: US-CELGENEUS-163-21880-11033206

PATIENT
  Age: 78 Year
  Sex: Male
  Weight: 75.64 kg

DRUGS (1)
  1. REVLIMID [Suspect]
     Indication: MULTIPLE MYELOMA
     Route: 048

REACTIONS (6)
  - Toxicity to various agents [Unknown]
  - Gastrooesophageal reflux disease [Unknown]
  - Renal failure chronic [Unknown]
  - Bronchitis [Unknown]
  - Laryngitis [Unknown]
  - Pancytopenia [Unknown]
